FAERS Safety Report 11277979 (Version 2)
Quarter: 2015Q3

REPORT INFORMATION
  Report Type: Report from Study
  Country: US (occurrence: US)
  Receive Date: 20150717
  Receipt Date: 20150727
  Transmission Date: 20151125
  Serious: Yes (Other)
  Sender: FDA-Public Use
  Company Number: PHEH2015US010874

PATIENT
  Sex: Female
  Weight: 68.27 kg

DRUGS (2)
  1. GILENYA [Suspect]
     Active Substance: FINGOLIMOD HYDROCHLORIDE
     Dosage: 0.5 MG, QD
     Route: 048
  2. GILENYA [Suspect]
     Active Substance: FINGOLIMOD HYDROCHLORIDE
     Indication: MULTIPLE SCLEROSIS
     Dosage: 0.5 MG, QD
     Route: 048
     Dates: start: 20150319, end: 201505

REACTIONS (6)
  - Eye disorder [Recovering/Resolving]
  - Multiple sclerosis relapse [Unknown]
  - Drug ineffective [Unknown]
  - IIIrd nerve paralysis [Recovering/Resolving]
  - Diplopia [Unknown]
  - Central nervous system lesion [Unknown]
